FAERS Safety Report 25656233 (Version 1)
Quarter: 2025Q3

REPORT INFORMATION
  Report Type: Spontaneous
  Country: US (occurrence: US)
  Receive Date: 20250807
  Receipt Date: 20250807
  Transmission Date: 20251021
  Serious: Yes (Other)
  Sender: AMGEN
  Company Number: US-AMGEN-USASP2025151977

PATIENT
  Age: 20 Month
  Sex: Female

DRUGS (9)
  1. RITUXIMAB [Suspect]
     Active Substance: RITUXIMAB
     Indication: Linear IgA disease
     Route: 065
  2. PREDNISONE [Suspect]
     Active Substance: PREDNISONE
     Indication: Linear IgA disease
     Route: 065
  3. CORTICOSTEROID NOS [Concomitant]
     Active Substance: CORTICOSTEROID NOS
     Route: 040
  4. CORTICOSTEROID NOS [Concomitant]
     Active Substance: CORTICOSTEROID NOS
     Route: 040
  5. CORTICOSTEROID NOS [Concomitant]
     Active Substance: CORTICOSTEROID NOS
     Route: 040
  6. CORTICOSTEROID NOS [Concomitant]
     Active Substance: CORTICOSTEROID NOS
     Dosage: 10 MILLIGRAM/KILOGRAM, QD
     Route: 040
  7. DAPSONE [Concomitant]
     Active Substance: DAPSONE
     Dosage: 0.5 MILLIGRAM/KILOGRAM, QD
     Route: 065
  8. DAPSONE [Concomitant]
     Active Substance: DAPSONE
     Dosage: 1 MILLIGRAM/KILOGRAM, QD
     Route: 065
  9. Immunoglobulin [Concomitant]
     Route: 040

REACTIONS (3)
  - Linear IgA disease [Unknown]
  - Drug effective for unapproved indication [Unknown]
  - Off label use [Unknown]
